FAERS Safety Report 18502307 (Version 1)
Quarter: 2020Q4

REPORT INFORMATION
  Report Type: Other
  Country: US (occurrence: US)
  Receive Date: 20201113
  Receipt Date: 20201113
  Transmission Date: 20210114
  Serious: No
  Sender: FDA-Public Use
  Company Number: US-LEADIANT BIOSCIENCES INC-2020STPI000184

PATIENT
  Sex: Female

DRUGS (12)
  1. POTASSIUM CITRATE. [Concomitant]
     Active Substance: POTASSIUM CITRATE
  2. CALCIUM [Concomitant]
     Active Substance: CALCIUM
  3. KLOR-CON M10 [Concomitant]
     Active Substance: POTASSIUM CHLORIDE
  4. K PHOS NEUTRAL [Concomitant]
     Active Substance: POTASSIUM PHOSPHATE, MONOBASIC\SODIUM PHOSPHATE, DIBASIC, ANHYDROUS\SODIUM PHOSPHATE, MONOBASIC, MONOHYDRATE
  5. POTASSIUM CHLORIDE. [Concomitant]
     Active Substance: POTASSIUM CHLORIDE
  6. IBUPROFEN. [Concomitant]
     Active Substance: IBUPROFEN
  7. POTASSIUM [Concomitant]
     Active Substance: POTASSIUM
  8. VITAMIN D [ERGOCALCIFEROL] [Concomitant]
     Active Substance: ERGOCALCIFEROL
  9. CYSTARAN [Suspect]
     Active Substance: CYSTEAMINE HYDROCHLORIDE
     Indication: CYSTINOSIS
     Dosage: 15 ML, PLACE ONE DROP INTO BOTH EYES 10 TIMES DAILY
     Route: 047
     Dates: start: 20150828
  10. PROCYSBI [Concomitant]
     Active Substance: CYSTEAMINE BITARTRATE
  11. CHLOROPHYLL [Concomitant]
  12. VIRT PHOS NEUTRAL [Concomitant]

REACTIONS (1)
  - Intentional product misuse [Not Recovered/Not Resolved]
